FAERS Safety Report 23193391 (Version 1)
Quarter: 2023Q4

REPORT INFORMATION
  Report Type: Spontaneous
  Country: CA (occurrence: CA)
  Receive Date: 20231116
  Receipt Date: 20231116
  Transmission Date: 20240109
  Serious: Yes (Other)
  Sender: FDA-Public Use
  Company Number: CA-TEVA-2023-CA-2944203

PATIENT
  Age: 4 Decade
  Sex: Female

DRUGS (2)
  1. METHOTREXATE [Suspect]
     Active Substance: METHOTREXATE
     Indication: Corneal epithelial downgrowth
     Dosage: 400 MICROG/0.1ML , ADDITIONAL INFO: ROUTE: {INTRAVITREAL}
     Route: 050
  2. FLUOROURACIL [Concomitant]
     Active Substance: FLUOROURACIL
     Indication: Corneal epithelial downgrowth
     Dosage: ADDITIONAL INFO: ROUTE: {INTRACAMERAL}
     Route: 050

REACTIONS (4)
  - Hypotony of eye [Unknown]
  - Glaucoma [Unknown]
  - Retinal detachment [Unknown]
  - Keratopathy [Unknown]
